FAERS Safety Report 21518648 (Version 1)
Quarter: 2022Q4

REPORT INFORMATION
  Report Type: Spontaneous
  Country: US (occurrence: None)
  Receive Date: 20221027
  Receipt Date: 20221027
  Transmission Date: 20230113
  Serious: No
  Sender: FDA-Public Use
  Company Number: None

PATIENT
  Age: 85 Year
  Sex: Male
  Weight: 110.68 kg

DRUGS (15)
  1. PEGASYS [Suspect]
     Active Substance: PEGINTERFERON ALFA-2A
     Indication: Cutaneous B-cell lymphoma
     Dosage: FREQUENCY : WEEKLY;?
     Route: 058
  2. ASPIRIN [Concomitant]
  3. CHLORTHALIDONE [Concomitant]
  4. CLOPIDOGREL [Concomitant]
  5. COREG [Concomitant]
  6. DESONIDE [Concomitant]
  7. DORZOLAMIDE [Concomitant]
  8. JARDIANCE [Concomitant]
  9. LEVOTHYROXINE [Concomitant]
  10. LIPITOR [Concomitant]
     Active Substance: ATORVASTATIN CALCIUM
  11. LOTREL [Concomitant]
  12. METFORMIN [Concomitant]
  13. SORIATANE [Concomitant]
  14. TRAIMCINOLONE ACETONIDE [Concomitant]
  15. TYLENOL [Concomitant]

REACTIONS (1)
  - Adverse drug reaction [None]
